FAERS Safety Report 14410818 (Version 1)
Quarter: 2018Q1

REPORT INFORMATION
  Report Type: Spontaneous
  Country: US (occurrence: US)
  Receive Date: 20180119
  Receipt Date: 20180119
  Transmission Date: 20180509
  Serious: Yes (Other)
  Sender: FDA-Public Use
  Company Number: US-B.I. PHARMACEUTICALS,INC./RIDGEFIELD-2018-BI-002427

PATIENT
  Age: 66 Year
  Sex: Male

DRUGS (1)
  1. PRAXBIND [Suspect]
     Active Substance: IDARUCIZUMAB
     Indication: PULMONARY ALVEOLAR HAEMORRHAGE
     Route: 065

REACTIONS (3)
  - Pneumonia streptococcal [Unknown]
  - Pneumonia escherichia [Unknown]
  - Pneumonia klebsiella [Unknown]
